FAERS Safety Report 7940558-9 (Version None)
Quarter: 2011Q4

REPORT INFORMATION
  Report Type: 
  Country: None (occurrence: None)
  Receive Date: 20111108
  Receipt Date: 20110809
  Transmission Date: 20120403
  Serious: Yes (Death)
  Sender: FDA-Public Use
  Company Number: PHHY2011US65691

PATIENT
  Age: 54 Year
  Sex: Male

DRUGS (4)
  1. TARCEVA [Concomitant]
  2. XELODA [Concomitant]
  3. GEMZAR [Concomitant]
  4. ZOMETA [Suspect]
     Dates: start: 20101201

REACTIONS (2)
  - NEOPLASM PROGRESSION [None]
  - NEOPLASM MALIGNANT [None]
